FAERS Safety Report 7970331-7 (Version None)
Quarter: 2011Q4

REPORT INFORMATION
  Report Type: 
  Country: None (occurrence: None)
  Receive Date: 20111212
  Receipt Date: 20111201
  Transmission Date: 20120403
  Serious: Yes (Hospitalization, Other)
  Sender: FDA-Public Use
  Company Number: US-BAYER-2011-040663

PATIENT
  Age: 49 Year
  Sex: Female
  Weight: 65.76 kg

DRUGS (2)
  1. YASMIN [Suspect]
     Indication: CONTRACEPTION
     Dosage: UNK
     Dates: start: 20000101, end: 20051001
  2. RANITIDINE [Concomitant]
     Dosage: 150 MG, UNK
     Route: 048

REACTIONS (10)
  - PAIN [None]
  - HIP FRACTURE [None]
  - GENERAL PHYSICAL HEALTH DETERIORATION [None]
  - BALANCE DISORDER [None]
  - CEREBROVASCULAR ACCIDENT [None]
  - INJURY [None]
  - EMOTIONAL DISTRESS [None]
  - FALL [None]
  - ANXIETY [None]
  - HEMIPLEGIA [None]
